FAERS Safety Report 10517269 (Version 2)
Quarter: 2014Q4

REPORT INFORMATION
  Report Type: Spontaneous
  Country: US (occurrence: US)
  Receive Date: 20141014
  Receipt Date: 20141024
  Transmission Date: 20150528
  Serious: Yes (Death, Other)
  Sender: FDA-Public Use
  Company Number: US-INCYTE CORPORATION-2014IN002947

PATIENT
  Age: 79 Year
  Sex: Male
  Weight: 90.7 kg

DRUGS (13)
  1. BYSTOLIC [Concomitant]
     Active Substance: NEBIVOLOL HYDROCHLORIDE
  2. SMZ-TMP [Concomitant]
     Active Substance: SULFAMETHOXAZOLE\TRIMETHOPRIM
  3. ALLOPURINOL. [Concomitant]
     Active Substance: ALLOPURINOL
  4. CEPHALEXIN                         /00145501/ [Concomitant]
     Active Substance: CEPHALEXIN
  5. HYDROCODONE [Concomitant]
     Active Substance: HYDROCODONE
  6. JAKAFI [Suspect]
     Active Substance: RUXOLITINIB
     Indication: MYELOFIBROSIS
     Dosage: 25 MG, BID
     Route: 048
     Dates: start: 20140714, end: 20141002
  7. JAKAFI [Suspect]
     Active Substance: RUXOLITINIB
     Dosage: 25 MG, BID
     Route: 048
     Dates: end: 20141014
  8. ZOLPIDEM [Concomitant]
     Active Substance: ZOLPIDEM\ZOLPIDEM TARTRATE
  9. CALCIUM [Concomitant]
     Active Substance: CALCIUM
  10. DOXAZOSIN [Concomitant]
     Active Substance: DOXAZOSIN\DOXAZOSIN MESYLATE
  11. LISINOPRIL. [Concomitant]
     Active Substance: LISINOPRIL
  12. METFORMIN [Concomitant]
     Active Substance: METFORMIN HYDROCHLORIDE
  13. VITAMIN D3 [Concomitant]
     Active Substance: CHOLECALCIFEROL

REACTIONS (7)
  - Platelet count decreased [Unknown]
  - Dyspnoea [Unknown]
  - Asthenia [Unknown]
  - Death [Fatal]
  - Dehydration [Unknown]
  - Biopsy bone marrow [Unknown]
  - Splenomegaly [Unknown]

NARRATIVE: CASE EVENT DATE: 201409
